FAERS Safety Report 25964241 (Version 1)
Quarter: 2025Q4

REPORT INFORMATION
  Report Type: Report from Study
  Country: PE (occurrence: PE)
  Receive Date: 20251027
  Receipt Date: 20251027
  Transmission Date: 20260118
  Serious: Yes (Other)
  Sender: NOVARTIS
  Company Number: PE-002147023-NVSC2025PE165300

PATIENT
  Sex: Female

DRUGS (1)
  1. KISQALI [Suspect]
     Active Substance: RIBOCICLIB SUCCINATE
     Indication: Breast cancer metastatic
     Dosage: 600 MG, QD
     Route: 048
     Dates: start: 20250820

REACTIONS (12)
  - Shock [Unknown]
  - Dizziness [Unknown]
  - Skin exfoliation [Unknown]
  - Discomfort [Unknown]
  - Vertigo [Unknown]
  - Vomiting [Unknown]
  - Nausea [Unknown]
  - Liver disorder [Unknown]
  - Decreased immune responsiveness [Unknown]
  - Taste disorder [Unknown]
  - Burning sensation [Unknown]
  - Eye irritation [Recovered/Resolved]

NARRATIVE: CASE EVENT DATE: 20250101
